FAERS Safety Report 8080839 (Version 2)
Quarter: 2014Q1

REPORT INFORMATION
  Report Type: Spontaneous
  Country: IT (occurrence: IT)
  Receive Date: 20110808
  Receipt Date: 20140227
  Transmission Date: 20141002
  Serious: Yes (Hospitalization)
  Sender: FDA-Public Use
  Company Number: IT-MYLANLABS-2011S1015382

PATIENT
  Age: 62 Year
  Sex: Female

DRUGS (3)
  1. VALPROIC ACID [Suspect]
     Indication: BIPOLAR DISORDER
     Route: 065
  2. DISULFIRAM [Interacting]
     Indication: ALCOHOLISM
     Dosage: 400 MG/DAY
     Route: 065
  3. SODIUM OXYBATE [Interacting]
     Indication: ALCOHOLISM
     Dosage: 46 MG/KG/DAY
     Route: 065

REACTIONS (3)
  - Psychotic disorder [Recovered/Resolved]
  - Grand mal convulsion [Recovered/Resolved]
  - Drug interaction [Recovered/Resolved]
